FAERS Safety Report 10974272 (Version 1)
Quarter: 2015Q2

REPORT INFORMATION
  Report Type: Spontaneous
  Country: US (occurrence: US)
  Receive Date: 20150401
  Receipt Date: 20150401
  Transmission Date: 20150821
  Serious: No
  Sender: FDA-Public Use
  Company Number: US-ELI_LILLY_AND_COMPANY-US201503002931

PATIENT
  Sex: Male

DRUGS (5)
  1. OLANZAPINE. [Suspect]
     Active Substance: OLANZAPINE
     Indication: ANXIETY
     Dosage: UNK, UNKNOWN
     Route: 065
  2. QUETIAPINE [Concomitant]
     Active Substance: QUETIAPINE
     Dosage: 25 MG, UNKNOWN
     Route: 065
  3. ZYPREXA [Suspect]
     Active Substance: OLANZAPINE
     Indication: ANXIETY
     Dosage: 7.5 MG, UNKNOWN
     Route: 048
     Dates: start: 2004, end: 2013
  4. NIASPAN [Concomitant]
     Active Substance: NIACIN
     Dosage: UNK, UNKNOWN
     Route: 065
  5. NADOLOL. [Concomitant]
     Active Substance: NADOLOL
     Dosage: 20 MG, UNKNOWN
     Route: 065

REACTIONS (2)
  - Palpitations [Unknown]
  - Off label use [Unknown]

NARRATIVE: CASE EVENT DATE: 2004
